FAERS Safety Report 24145481 (Version 1)
Quarter: 2024Q3

REPORT INFORMATION
  Report Type: Spontaneous
  Country: US (occurrence: US)
  Receive Date: 20240729
  Receipt Date: 20240729
  Transmission Date: 20241016
  Serious: No
  Sender: AMARIN
  Company Number: US-Amarin Pharma  Inc-2024AMR000343

PATIENT
  Age: 57 Year
  Sex: Male

DRUGS (6)
  1. VASCEPA [Suspect]
     Active Substance: ICOSAPENT ETHYL
     Indication: Blood cholesterol
     Dosage: 2 CAPSULES TWICE DAILY
     Dates: start: 2014
  2. XARELTO [Concomitant]
     Active Substance: RIVAROXABAN
  3. ATORVASTATIN [Concomitant]
     Active Substance: ATORVASTATIN
     Indication: Product used for unknown indication
  4. GLIMEPIRIDE [Concomitant]
     Active Substance: GLIMEPIRIDE
     Indication: Product used for unknown indication
  5. JARDIANCE [Concomitant]
     Active Substance: EMPAGLIFLOZIN
     Indication: Product used for unknown indication
  6. OZEMPIC [Concomitant]
     Active Substance: SEMAGLUTIDE
     Indication: Product used for unknown indication

REACTIONS (5)
  - Abdominal pain upper [Recovering/Resolving]
  - Nausea [Recovered/Resolved]
  - Vomiting [Recovering/Resolving]
  - Poor quality product administered [Unknown]
  - Product odour abnormal [Unknown]

NARRATIVE: CASE EVENT DATE: 20240101
